FAERS Safety Report 15129570 (Version 1)
Quarter: 2018Q3

REPORT INFORMATION
  Report Type: Spontaneous
  Country: US (occurrence: US)
  Receive Date: 20180711
  Receipt Date: 20180711
  Transmission Date: 20181010
  Serious: No
  Sender: FDA-Public Use
  Company Number: US-SA-2018SA185270

PATIENT
  Age: 10 Year
  Sex: Male
  Weight: 73 kg

DRUGS (7)
  1. NEURONTIN [Concomitant]
     Active Substance: GABAPENTIN
     Dosage: 1 TSP AT BEDTIME
     Dates: start: 20170612
  2. FABRAZYME [Suspect]
     Active Substance: AGALSIDASE BETA
     Indication: LIPIDOSIS
     Dosage: 30 MG, QOW
  3. ACETAMINOPHEN. [Concomitant]
     Active Substance: ACETAMINOPHEN
     Dosage: 300 MG
     Dates: start: 20180211
  4. DIPHENHYDRAMINE HYDROCHLORIDE. [Concomitant]
     Active Substance: DIPHENHYDRAMINE HYDROCHLORIDE
     Dosage: 12.5 MG
     Dates: start: 20180211
  5. LIDOCAINE. [Concomitant]
     Active Substance: LIDOCAINE
     Dosage: 2.5%
     Dates: start: 20180612
  6. FABRAZYME [Suspect]
     Active Substance: AGALSIDASE BETA
     Indication: FABRY^S DISEASE
  7. EPINEPHRINE. [Concomitant]
     Active Substance: EPINEPHRINE
     Dosage: 0.15 MG, PRN
     Dates: start: 20180211

REACTIONS (1)
  - Chest pain [Unknown]
